FAERS Safety Report 7487046-4 (Version None)
Quarter: 2011Q2

REPORT INFORMATION
  Report Type: 
  Country: None (occurrence: None)
  Receive Date: 20110518
  Receipt Date: 20110509
  Transmission Date: 20111010
  Serious: Yes (Hospitalization)
  Sender: FDA-Public Use
  Company Number: US-BIOGENIDEC-2011BI007176

PATIENT
  Age: 38 Year
  Sex: Female

DRUGS (1)
  1. TYSABRI [Suspect]
     Indication: MULTIPLE SCLEROSIS
     Route: 042
     Dates: start: 20110211, end: 20110401

REACTIONS (6)
  - PAIN [None]
  - HEMIPLEGIA [None]
  - EMOTIONAL DISORDER [None]
  - CRYING [None]
  - NEURALGIA [None]
  - VISION BLURRED [None]
